FAERS Safety Report 17634881 (Version 1)
Quarter: 2020Q2

REPORT INFORMATION
  Report Type: Spontaneous
  Country: US (occurrence: US)
  Receive Date: 20200407
  Receipt Date: 20200407
  Transmission Date: 20200713
  Serious: No
  Sender: FDA-Public Use
  Company Number: US-US WORLDMEDS, LLC-USW202002-000362

PATIENT
  Age: 75 Year
  Sex: Female
  Weight: 50.1 kg

DRUGS (9)
  1. RYTARY [Concomitant]
     Active Substance: CARBIDOPA\LEVODOPA
     Dosage: UNKNOWN
  2. XADAGO [Suspect]
     Active Substance: SAFINAMIDE MESYLATE
     Dosage: DECREASED TO 50
  3. REMERON [Concomitant]
     Active Substance: MIRTAZAPINE
  4. CARBIDOPA/LEVODOPA [Concomitant]
     Active Substance: CARBIDOPA\LEVODOPA
     Dosage: UNKNOWN
  5. XADAGO [Suspect]
     Active Substance: SAFINAMIDE MESYLATE
     Indication: PRODUCT USED FOR UNKNOWN INDICATION
     Dosage: UNKNOWN
  6. XADAGO [Suspect]
     Active Substance: SAFINAMIDE MESYLATE
  7. CLONAZEPAM. [Concomitant]
     Active Substance: CLONAZEPAM
  8. GOCOVRI [Suspect]
     Active Substance: AMANTADINE
     Indication: DYSKINESIA
     Route: 048
     Dates: start: 20191210, end: 20191216
  9. GOCOVRI [Suspect]
     Active Substance: AMANTADINE
     Route: 048
     Dates: start: 20191217, end: 20191219

REACTIONS (5)
  - Dyspnoea [Unknown]
  - Freezing phenomenon [Recovered/Resolved]
  - Psychomotor hyperactivity [Recovered/Resolved]
  - Depression [Unknown]
  - Dyskinesia [Unknown]

NARRATIVE: CASE EVENT DATE: 201912
